FAERS Safety Report 4913156-9 (Version None)
Quarter: 2006Q1

REPORT INFORMATION
  Report Type: 
  Country: None (occurrence: None)
  Receive Date: 20060215
  Receipt Date: 20050930
  Transmission Date: 20060701
  Serious: Yes (Hospitalization, Other)
  Sender: FDA-Public Use
  Company Number: PR-MERCK-0510USA01551

PATIENT
  Age: 56 Year
  Sex: Male
  Weight: 86 kg

DRUGS (2)
  1. VIOXX [Suspect]
     Indication: BACK PAIN
     Route: 048
     Dates: start: 20000101, end: 20030101
  2. VIOXX [Suspect]
     Indication: ARTHRITIS
     Route: 048
     Dates: start: 20000101, end: 20030101

REACTIONS (14)
  - ANGINA PECTORIS [None]
  - ARRHYTHMIA [None]
  - CARDIAC DISORDER [None]
  - CEREBROVASCULAR ACCIDENT [None]
  - CHEST PAIN [None]
  - CORONARY ARTERY DISEASE [None]
  - FALL [None]
  - GASTRITIS [None]
  - HERNIA [None]
  - MYOCARDIAL INFARCTION [None]
  - ORGAN FAILURE [None]
  - OVERDOSE [None]
  - PULMONARY EMBOLISM [None]
  - THROMBOSIS [None]
